FAERS Safety Report 8600425-4 (Version None)
Quarter: 2012Q3

REPORT INFORMATION
  Report Type: 
  Country: None (occurrence: None)
  Receive Date: 20120802
  Receipt Date: 20120717
  Transmission Date: 20120928
  Serious: Yes (Hospitalization)
  Sender: FDA-Public Use
  Company Number: TCI2012A01284

PATIENT
  Age: 67 Year
  Sex: Male

DRUGS (11)
  1. ACTOS [Suspect]
     Indication: TYPE 2 DIABETES MELLITUS
     Dosage: 31 MG (30 MG, 1 IN 1 D) PER ORAL
     Route: 048
     Dates: start: 20091008, end: 20110616
  2. CRESTOR [Concomitant]
  3. LIPITOR [Concomitant]
  4. WARFARIN SODIUM [Concomitant]
  5. LANTUS [Concomitant]
  6. CORINAEL CR (NIFEDI PINE) [Concomitant]
  7. NOVORAPID FLEXPEN(TNSULIN ASPART) [Concomitant]
  8. ASPIRIN [Concomitant]
  9. ECARD COMBINATION TABLETS HD (CANDESARTAN CILEXETIL, HYDROCHLOROTHIAZI [Concomitant]
  10. MAINHEART (BISOPROLOL FUMARATE) [Concomitant]
  11. BEPRICOR (BEPRIDIL) [Concomitant]

REACTIONS (2)
  - BLADDER TRANSITIONAL CELL CARCINOMA [None]
  - URETERIC CANCER [None]
